FAERS Safety Report 5730940-2 (Version None)
Quarter: 2008Q2

REPORT INFORMATION
  Report Type: 
  Country: None (occurrence: None)
  Receive Date: 20080507
  Receipt Date: 20080425
  Transmission Date: 20081010
  Serious: Yes (Death)
  Sender: FDA-Public Use
  Company Number: HQWYE236101SEP06

PATIENT
  Sex: Female

DRUGS (12)
  1. PANTOPRAZOLE SODIUM [Suspect]
     Indication: PROPHYLAXIS
     Route: 048
     Dates: start: 20060104
  2. PAMOL [Concomitant]
     Indication: PAIN
     Route: 048
     Dates: start: 20050105
  3. KALEORID [Concomitant]
     Indication: MINERAL SUPPLEMENTATION
     Route: 048
     Dates: start: 20050106
  4. EMPERAL [Concomitant]
     Indication: NAUSEA
     Route: 048
     Dates: start: 20050107
  5. EMPERAL [Concomitant]
     Indication: VOMITING
  6. PROCTOSEDYL [Concomitant]
     Dosage: ^DF^, FREQUENCY UNKNOWN
     Route: 054
  7. FERROUS GLYCINE SULFATE [Concomitant]
     Route: 048
     Dates: start: 20051201
  8. FRAGMIN [Concomitant]
     Indication: ANTICOAGULANT THERAPY
     Route: 042
     Dates: start: 20060101
  9. IMOZOP [Concomitant]
     Dosage: 7.5 MG, FREQUENCY UNKNOWN
     Route: 048
  10. OXAZEPAM [Concomitant]
     Dosage: 7.5 MG, FREQUENCY UNKNOWN
     Route: 048
  11. PREDNISOLON [Concomitant]
     Route: 048
     Dates: start: 20050104
  12. FUROSEMIDE [Concomitant]
     Route: 048
     Dates: start: 20050119

REACTIONS (3)
  - HEPATOMEGALY [None]
  - JAUNDICE [None]
  - OEDEMA PERIPHERAL [None]
